FAERS Safety Report 8741897 (Version 6)
Quarter: 2014Q1

REPORT INFORMATION
  Report Type: Spontaneous
  Country: US (occurrence: US)
  Receive Date: 20120824
  Receipt Date: 20140210
  Transmission Date: 20141002
  Serious: Yes (Other)
  Sender: FDA-Public Use
  Company Number: US-PFIZER INC-2012205741

PATIENT
  Age: 56 Year
  Sex: Female
  Weight: 90.7 kg

DRUGS (6)
  1. CELEBREX [Suspect]
     Dosage: UNK
  2. PRISTIQ [Suspect]
     Indication: DEPRESSION
     Dosage: 50 MG, 1X/DAY
     Route: 048
  3. LYRICA [Suspect]
     Indication: FIBROMYALGIA
     Dosage: 100 MG, 4X/DAY
  4. LYRICA [Suspect]
     Dosage: 150 MG, 3X/DAY
     Route: 048
  5. LYRICA [Suspect]
     Dosage: 150MG, EVERY 8 HRS
     Route: 048
     Dates: end: 201311
  6. ALPRAZOLAM [Concomitant]
     Indication: DEPRESSION
     Dosage: DAILY

REACTIONS (10)
  - Convulsion [Unknown]
  - Drug dependence [Unknown]
  - Ulcer [Unknown]
  - Malaise [Unknown]
  - Emotional disorder [Unknown]
  - Muscle spasms [Unknown]
  - Feeling abnormal [Unknown]
  - Restlessness [Unknown]
  - Depression [Unknown]
  - Insomnia [Unknown]
